FAERS Safety Report 10504774 (Version 2)
Quarter: 2014Q4

REPORT INFORMATION
  Report Type: Spontaneous
  Country: US (occurrence: None)
  Receive Date: 20140915
  Receipt Date: 20141024
  Transmission Date: 20150528
  Serious: Yes (Other)
  Sender: FDA-Public Use
  Company Number: 2013SGN00274

PATIENT
  Age: 22 Year
  Sex: Male

DRUGS (1)
  1. ADCETRIS [Suspect]
     Active Substance: BRENTUXIMAB VEDOTIN
     Indication: ANAPLASTIC LARGE-CELL LYMPHOMA
     Dosage: Q21D, INTRAVENOUS
     Route: 042

REACTIONS (3)
  - Neuralgia [None]
  - Myalgia [None]
  - Anaphylactic reaction [None]

NARRATIVE: CASE EVENT DATE: 20130509
